FAERS Safety Report 16798102 (Version 2)
Quarter: 2019Q3

REPORT INFORMATION
  Report Type: Report from Study
  Country: JP (occurrence: JP)
  Receive Date: 20190912
  Receipt Date: 20190924
  Transmission Date: 20191005
  Serious: Yes (Other)
  Sender: FDA-Public Use
  Company Number: JP-SA-2019SA251983

PATIENT
  Age: 42 Year
  Sex: Male
  Weight: 50.5 kg

DRUGS (14)
  1. IRINOTECAN [Suspect]
     Active Substance: IRINOTECAN
     Dosage: UNK
     Route: 065
     Dates: start: 20190620
  2. AFLIBERCEPT [Suspect]
     Active Substance: AFLIBERCEPT
     Dosage: UNK
     Route: 041
     Dates: start: 20190620
  3. FLUOROURACIL. [Suspect]
     Active Substance: FLUOROURACIL
     Dosage: 650MG, 1X
     Route: 065
     Dates: start: 20190822, end: 20190822
  4. CRAVIT [Concomitant]
     Active Substance: LEVOFLOXACIN
     Indication: C-REACTIVE PROTEIN INCREASED
     Dosage: 250 MG, QD
     Route: 048
     Dates: start: 20190822, end: 2019
  5. CALCIUM LEVOFOLINATE [Suspect]
     Active Substance: LEVOLEUCOVORIN CALCIUM
     Indication: RECTAL CANCER
     Dosage: UNK UNK, 1X
     Route: 065
     Dates: start: 20190822, end: 20190822
  6. FLUOROURACIL. [Suspect]
     Active Substance: FLUOROURACIL
     Indication: RECTAL CANCER
     Dosage: 3930 MG
     Route: 065
     Dates: start: 20190822, end: 20190824
  7. CALCIUM LEVOFOLINATE [Suspect]
     Active Substance: LEVOLEUCOVORIN CALCIUM
     Dosage: UNK UNK, 1X
     Route: 065
     Dates: start: 20190808, end: 20190808
  8. FLUOROURACIL. [Suspect]
     Active Substance: FLUOROURACIL
     Dosage: UNK
     Route: 065
     Dates: start: 20190808, end: 20190808
  9. AFLIBERCEPT [Suspect]
     Active Substance: AFLIBERCEPT
     Indication: RECTAL CANCER
     Dosage: 230 MG, 1X
     Route: 041
     Dates: start: 20190822, end: 20190822
  10. CALCIUM LEVOFOLINATE [Suspect]
     Active Substance: LEVOLEUCOVORIN CALCIUM
     Dosage: UNK
     Route: 065
     Dates: start: 20190620
  11. IRINOTECAN [Suspect]
     Active Substance: IRINOTECAN
     Dosage: UNK UNK, 1X
     Route: 065
     Dates: start: 20190808, end: 20190808
  12. FLUOROURACIL. [Suspect]
     Active Substance: FLUOROURACIL
     Dosage: UNK
     Route: 065
     Dates: start: 20190620
  13. AFLIBERCEPT [Suspect]
     Active Substance: AFLIBERCEPT
     Dosage: UNK UNK, 1X
     Route: 041
     Dates: start: 20190808, end: 20190808
  14. IRINOTECAN [Suspect]
     Active Substance: IRINOTECAN
     Indication: RECTAL CANCER
     Dosage: 240 MG, 1X
     Route: 065
     Dates: start: 20190822, end: 20190822

REACTIONS (3)
  - Malaise [Recovered/Resolved]
  - Decreased appetite [Recovered/Resolved]
  - C-reactive protein increased [Recovering/Resolving]

NARRATIVE: CASE EVENT DATE: 20190905
